FAERS Safety Report 17124464 (Version 2)
Quarter: 2020Q4

REPORT INFORMATION
  Report Type: Spontaneous
  Country: US (occurrence: US)
  Receive Date: 20191206
  Receipt Date: 20201207
  Transmission Date: 20210113
  Serious: No
  Sender: FDA-Public Use
  Company Number: US-NOVOPROD-691612

PATIENT
  Age: 74 Year
  Sex: Male

DRUGS (1)
  1. NOVOLIN 70/30 [Suspect]
     Active Substance: INSULIN HUMAN
     Indication: TYPE 2 DIABETES MELLITUS
     Dosage: 3 TIMES DAY
     Route: 058

REACTIONS (1)
  - Hypoacusis [Not Recovered/Not Resolved]
